FAERS Safety Report 8002070-0 (Version None)
Quarter: 2011Q4

REPORT INFORMATION
  Report Type: 
  Country: None (occurrence: None)
  Receive Date: 20111222
  Receipt Date: 20111212
  Transmission Date: 20120403
  Serious: Yes (Hospitalization)
  Sender: FDA-Public Use
  Company Number: GB-MYLANLABS-2011S1025577

PATIENT
  Age: 71 Year
  Sex: Female

DRUGS (10)
  1. METFORMIN HCL [Suspect]
     Route: 065
  2. PERINDOPRIL [Concomitant]
     Route: 065
  3. IRBESARTAN [Concomitant]
     Route: 065
  4. ASPIRIN [Concomitant]
     Route: 065
  5. BENDROFLUMETHIAZIDE [Concomitant]
     Route: 065
  6. ALLOPURINOL [Concomitant]
     Route: 065
  7. GLICLAZIDE [Suspect]
     Route: 065
  8. DOXAZOSIN MESYLATE [Concomitant]
     Route: 065
  9. ATENOLOL [Concomitant]
     Route: 065
  10. CLOPIDOGREL [Concomitant]
     Route: 065

REACTIONS (9)
  - HYPOGLYCAEMIA [None]
  - ALCOHOL USE [None]
  - LOWER RESPIRATORY TRACT INFECTION [None]
  - RENAL IMPAIRMENT [None]
  - LACTIC ACIDOSIS [None]
  - COMA [None]
  - HYPOTENSION [None]
  - HYPOTHERMIA [None]
  - TACHYPNOEA [None]
